FAERS Safety Report 5933217-5 (Version None)
Quarter: 2008Q4

REPORT INFORMATION
  Report Type: 
  Country: None (occurrence: None)
  Receive Date: 20081028
  Receipt Date: 20081016
  Transmission Date: 20090506
  Serious: Yes (Hospitalization, Other)
  Sender: FDA-Public Use
  Company Number: JP-PFIZER INC-2008066806

PATIENT
  Sex: Male
  Weight: 63.4 kg

DRUGS (9)
  1. GABAPEN [Suspect]
     Indication: CANCER PAIN
     Dosage: DAILY DOSE:600MG
     Route: 048
     Dates: start: 20080715, end: 20080730
  2. FENTANYL [Suspect]
     Indication: CANCER PAIN
     Dosage: DAILY DOSE:2.1MG
     Route: 062
     Dates: start: 20080729, end: 20080730
  3. FENTANYL [Suspect]
     Dosage: DAILY DOSE:5MG
     Route: 062
     Dates: start: 20080710
  4. OXINORM [Concomitant]
     Dates: start: 20080710
  5. LOXOPROFEN SODIUM [Concomitant]
     Route: 048
  6. NOVAMIN [Concomitant]
     Route: 048
  7. FAMOTIDINE [Concomitant]
     Route: 048
  8. POLAPREZINC [Concomitant]
     Route: 048
  9. ALL OTHER THERAPEUTIC PRODUCTS [Concomitant]
     Dates: start: 20080701, end: 20080812

REACTIONS (3)
  - PAIN [None]
  - RESPIRATORY DEPRESSION [None]
  - SOMNOLENCE [None]
